FAERS Safety Report 9394330 (Version 1)
Quarter: 2013Q3

REPORT INFORMATION
  Report Type: Spontaneous
  Country: ES (occurrence: ES)
  Receive Date: 20130711
  Receipt Date: 20130711
  Transmission Date: 20140515
  Serious: Yes (Other)
  Sender: FDA-Public Use
  Company Number: ES-AMGEN-ESPSP2013046316

PATIENT
  Sex: Female

DRUGS (2)
  1. PROLIA [Suspect]
     Indication: OSTEOPOROSIS
     Dosage: UNK
     Dates: start: 20130612
  2. LYRICA [Suspect]

REACTIONS (6)
  - Pancreatitis [Recovering/Resolving]
  - Gastrointestinal pain [Recovering/Resolving]
  - Gastrointestinal oedema [Unknown]
  - Renal pain [Unknown]
  - Hypokinesia [Unknown]
  - Pain [Unknown]
